FAERS Safety Report 5134839-4 (Version None)
Quarter: 2006Q4

REPORT INFORMATION
  Report Type: 
  Country: None (occurrence: None)
  Receive Date: 20061025
  Receipt Date: 20060914
  Transmission Date: 20070319
  Serious: Yes (Hospitalization, Other)
  Sender: FDA-Public Use
  Company Number: 2006UW18044

PATIENT
  Age: 56 Year
  Sex: Female

DRUGS (26)
  1. SEROQUEL [Suspect]
     Indication: DEPRESSION
     Route: 048
     Dates: start: 20051101
  2. SEROQUEL [Suspect]
     Indication: SUICIDAL IDEATION
     Route: 048
     Dates: start: 20051101
  3. SEROQUEL [Suspect]
     Indication: PSYCHOTIC DISORDER
     Route: 048
     Dates: start: 20051101
  4. SEROQUEL [Suspect]
     Route: 048
     Dates: start: 20060223, end: 20060308
  5. SEROQUEL [Suspect]
     Route: 048
     Dates: start: 20060223, end: 20060308
  6. SEROQUEL [Suspect]
     Route: 048
     Dates: start: 20060223, end: 20060308
  7. SEROQUEL [Suspect]
     Route: 048
     Dates: start: 20060309, end: 20060301
  8. SEROQUEL [Suspect]
     Route: 048
     Dates: start: 20060309, end: 20060301
  9. SEROQUEL [Suspect]
     Route: 048
     Dates: start: 20060309, end: 20060301
  10. SEROQUEL [Suspect]
     Route: 048
     Dates: start: 20060313, end: 20060607
  11. SEROQUEL [Suspect]
     Route: 048
     Dates: start: 20060313, end: 20060607
  12. SEROQUEL [Suspect]
     Route: 048
     Dates: start: 20060313, end: 20060607
  13. SEROQUEL [Suspect]
     Route: 048
     Dates: start: 20060607, end: 20060707
  14. SEROQUEL [Suspect]
     Route: 048
     Dates: start: 20060607, end: 20060707
  15. SEROQUEL [Suspect]
     Route: 048
     Dates: start: 20060607, end: 20060707
  16. LEXAPRO [Concomitant]
  17. AVANDIA [Concomitant]
  18. GLUCOPHAGE XR [Concomitant]
  19. LIPITOR [Concomitant]
  20. PRINIVIL [Concomitant]
     Route: 048
  21. AMBIEN [Concomitant]
     Dosage: 10 MG HS PRN
  22. RISPERDAL [Concomitant]
  23. NPH INSULIN [Concomitant]
  24. ATIVAN [Concomitant]
     Dosage: 1 MG Q4H PRN
  25. ARTANE [Concomitant]
  26. ASPIRIN [Concomitant]

REACTIONS (11)
  - ANXIETY [None]
  - CEREBROVASCULAR ACCIDENT [None]
  - FACIAL PAIN [None]
  - HEADACHE [None]
  - INSOMNIA [None]
  - MAJOR DEPRESSION [None]
  - NECK PAIN [None]
  - NEUROLOGICAL SYMPTOM [None]
  - TONGUE DISORDER [None]
  - TONGUE HAEMORRHAGE [None]
  - URINARY TRACT INFECTION [None]
